FAERS Safety Report 24295859 (Version 3)
Quarter: 2024Q4

REPORT INFORMATION
  Report Type: Spontaneous
  Country: TR (occurrence: TR)
  Receive Date: 20240909
  Receipt Date: 20241021
  Transmission Date: 20250115
  Serious: No
  Sender: JOHNSON AND JOHNSON
  Company Number: TR-JNJFOC-20240900234

PATIENT
  Sex: Male

DRUGS (1)
  1. SIMPONI [Suspect]
     Active Substance: GOLIMUMAB
     Indication: Product used for unknown indication
     Dosage: STRENGTH 50.00 MG / 0.50 ML
     Route: 058

REACTIONS (3)
  - Drug dose omission by device [Unknown]
  - Pain in extremity [Unknown]
  - Device issue [Unknown]
